FAERS Safety Report 18588648 (Version 1)
Quarter: 2020Q4

REPORT INFORMATION
  Report Type: Spontaneous
  Country: US (occurrence: US)
  Receive Date: 20201208
  Receipt Date: 20201208
  Transmission Date: 20210114
  Serious: Yes (Other)
  Sender: FDA-Public Use
  Company Number: US-AMGEN-USASP2020196068

PATIENT
  Age: 69 Year
  Sex: Male

DRUGS (6)
  1. HYDROXYUREA. [Concomitant]
     Active Substance: HYDROXYUREA
     Indication: NEOPLASM MALIGNANT
     Dosage: UNK UNK, BID
  2. PROCARDIA [Concomitant]
     Active Substance: NIFEDIPINE
     Dosage: 30 MILLIGRAM IN THE EVENING
  3. FLOMAX [Concomitant]
     Active Substance: TAMSULOSIN HYDROCHLORIDE
     Dosage: IN THE MORNING
  4. REPATHA [Suspect]
     Active Substance: EVOLOCUMAB
     Indication: BLOOD CHOLESTEROL INCREASED
     Dosage: 140 MILLIGRAM, Q2WK
     Route: 065
  5. COZAAR [Concomitant]
     Active Substance: LOSARTAN POTASSIUM
     Dosage: 100 MILLIGRAM IN THE MORNING
  6. ZINC. [Concomitant]
     Active Substance: ZINC
     Dosage: UNK UNK, QHS

REACTIONS (1)
  - Prostate infection [Unknown]
